FAERS Safety Report 24465639 (Version 1)
Quarter: 2024Q4

REPORT INFORMATION
  Report Type: Report from Study
  Country: US (occurrence: US)
  Receive Date: 20241018
  Receipt Date: 20241018
  Transmission Date: 20250114
  Serious: No
  Sender: ROCHE
  Company Number: US-ROCHE-3534573

PATIENT
  Age: 53 Year
  Sex: Female

DRUGS (5)
  1. XOLAIR [Suspect]
     Active Substance: OMALIZUMAB
     Indication: Urticaria
     Route: 058
     Dates: start: 20211115
  2. XOLAIR [Suspect]
     Active Substance: OMALIZUMAB
  3. TRIAMTERENE [Concomitant]
     Active Substance: TRIAMTERENE
  4. LOSARTAN [Concomitant]
     Active Substance: LOSARTAN
  5. EPINEPHRINE [Concomitant]
     Active Substance: EPINEPHRINE
     Route: 058

REACTIONS (20)
  - Seborrhoeic keratosis [Unknown]
  - Fatigue [Unknown]
  - Arthralgia [Unknown]
  - Off label use [Unknown]
  - Telangiectasia [Unknown]
  - Paraesthesia [Unknown]
  - Drug ineffective [Unknown]
  - Urticaria [Unknown]
  - Skin hyperpigmentation [Unknown]
  - Dermatitis [Unknown]
  - Skin exfoliation [Unknown]
  - Erythema [Unknown]
  - Macule [Unknown]
  - Photosensitivity reaction [Unknown]
  - Mechanical urticaria [Unknown]
  - Skin lesion [Unknown]
  - Neoplasm [Unknown]
  - Papule [Unknown]
  - Scab [Unknown]
  - Burning sensation [Unknown]
